FAERS Safety Report 7976329-7 (Version None)
Quarter: 2011Q4

REPORT INFORMATION
  Report Type: 
  Country: None (occurrence: None)
  Receive Date: 20111213
  Receipt Date: 20111018
  Transmission Date: 20120403
  Serious: No
  Sender: FDA-Public Use
  Company Number: US-AMGEN-USASP2011053872

PATIENT
  Age: 47 Year
  Sex: Female

DRUGS (1)
  1. ENBREL [Suspect]
     Indication: RHEUMATOID ARTHRITIS
     Dosage: 50 MG, QWK
     Dates: start: 20111014

REACTIONS (6)
  - HEADACHE [None]
  - NECK PAIN [None]
  - ABDOMINAL DISCOMFORT [None]
  - RESTLESS LEGS SYNDROME [None]
  - INSOMNIA [None]
  - NAUSEA [None]
